FAERS Safety Report 8476412-6 (Version None)
Quarter: 2012Q2

REPORT INFORMATION
  Report Type: 
  Country: None (occurrence: None)
  Receive Date: 20120628
  Receipt Date: 20120627
  Transmission Date: 20120825
  Serious: Yes (Other)
  Sender: FDA-Public Use
  Company Number: PHHY2010ES88208

PATIENT
  Age: 43 Year
  Sex: Female

DRUGS (3)
  1. METAMIZOLE [Concomitant]
     Indication: COLITIS ULCERATIVE
     Dosage: 2 G, Q6H
     Route: 042
  2. PIPERACILLIN/TAZOBACTAM [Suspect]
     Indication: COLITIS ULCERATIVE
     Dosage: 4/0.5 G EVERY 12 HOUR
  3. ACETAMINOPHEN [Concomitant]
     Indication: COLITIS ULCERATIVE
     Dosage: 1 G, Q6H
     Route: 042

REACTIONS (11)
  - HUMAN HERPES VIRUS 6 SEROLOGY POSITIVE [None]
  - RASH ERYTHEMATOUS [None]
  - LYMPHADENOPATHY [None]
  - DRUG RASH WITH EOSINOPHILIA AND SYSTEMIC SYMPTOMS [None]
  - RASH MACULO-PAPULAR [None]
  - LYMPHOCYTE TRANSFORMATION TEST POSITIVE [None]
  - DERMATITIS [None]
  - HEPATIC ENZYME INCREASED [None]
  - PRURITUS [None]
  - PYREXIA [None]
  - EOSINOPHILIA [None]
